FAERS Safety Report 14753793 (Version 1)
Quarter: 2018Q2

REPORT INFORMATION
  Report Type: Report from Study
  Country: AU (occurrence: AU)
  Receive Date: 20180412
  Receipt Date: 20180412
  Transmission Date: 20180711
  Serious: Yes (Other)
  Sender: FDA-Public Use
  Company Number: PHHY2018AU045090

PATIENT
  Age: 37 Year
  Sex: Female

DRUGS (2)
  1. NAPROXEN. [Concomitant]
     Active Substance: NAPROXEN
     Indication: PRODUCT USED FOR UNKNOWN INDICATION
     Route: 065
  2. VOLTAREN [Suspect]
     Active Substance: DICLOFENAC SODIUM
     Indication: PSORIATIC ARTHROPATHY
     Route: 065

REACTIONS (6)
  - Cartilage injury [Unknown]
  - Exostosis [Unknown]
  - Product use in unapproved indication [Unknown]
  - Inflammation [Unknown]
  - Synovial rupture [Unknown]
  - Ankle fracture [Unknown]
